FAERS Safety Report 22042410 (Version 1)
Quarter: 2023Q1

REPORT INFORMATION
  Report Type: Spontaneous
  Country: US (occurrence: US)
  Receive Date: 20230228
  Receipt Date: 20230228
  Transmission Date: 20230417
  Serious: Yes (Other)
  Sender: FDA-Public Use
  Company Number: US-ENDO PHARMACEUTICALS INC-2023-001025

PATIENT
  Sex: Male
  Weight: 65.76 kg

DRUGS (3)
  1. AVEED [Suspect]
     Active Substance: TESTOSTERONE UNDECANOATE
     Indication: Muscle strength abnormal
     Dosage: UNK UNKNOWN, UNKNOWN
     Route: 030
     Dates: start: 202112
  2. AVEED [Suspect]
     Active Substance: TESTOSTERONE UNDECANOATE
     Dosage: UNK UNKNOWN, UNKNOWN (4 WEEKS LATER FIRST INJECTION)
     Route: 030
  3. AVEED [Suspect]
     Active Substance: TESTOSTERONE UNDECANOATE
     Dosage: UNK UNKNOWN, UNKNOWN (10 WEEKS AFTER SECOND INJECTION)
     Route: 030
     Dates: start: 2022

REACTIONS (3)
  - Phlebotomy [Recovered/Resolved]
  - Haematocrit increased [Unknown]
  - Off label use [Unknown]
